FAERS Safety Report 5647122-5 (Version None)
Quarter: 2008Q1

REPORT INFORMATION
  Report Type: 
  Country: None (occurrence: None)
  Receive Date: 20080228
  Receipt Date: 20080228
  Transmission Date: 20080703
  Serious: No
  Sender: FDA-Public Use
  Company Number: None

PATIENT
  Age: 72 Year
  Sex: Female
  Weight: 81.6475 kg

DRUGS (1)
  1. ALPHAGAN [Suspect]
     Indication: GLAUCOMA
     Dosage: 1 DROP BID INTRAOCULAR
     Route: 031
     Dates: start: 20071101, end: 20080227

REACTIONS (2)
  - DERMATITIS CONTACT [None]
  - PHARMACEUTICAL PRODUCT COMPLAINT [None]
